FAERS Safety Report 8150093-3 (Version None)
Quarter: 2012Q1

REPORT INFORMATION
  Report Type: 
  Country: None (occurrence: None)
  Receive Date: 20120220
  Receipt Date: 20120210
  Transmission Date: 20120608
  Serious: Yes (Hospitalization)
  Sender: FDA-Public Use
  Company Number: US-BIOGENIDEC-2012BI002225

PATIENT
  Sex: Female

DRUGS (1)
  1. TYSABRI [Suspect]
     Indication: MULTIPLE SCLEROSIS
     Route: 042
     Dates: start: 20090619, end: 20111014

REACTIONS (6)
  - ORGAN FAILURE [None]
  - COMA [None]
  - LYMPHOEDEMA [None]
  - ABASIA [None]
  - CELLULITIS [None]
  - APNOEA [None]
